FAERS Safety Report 19139777 (Version 1)
Quarter: 2021Q2

REPORT INFORMATION
  Report Type: Spontaneous
  Country: CA (occurrence: CA)
  Receive Date: 20210415
  Receipt Date: 20210415
  Transmission Date: 20210717
  Serious: Yes (Other)
  Sender: FDA-Public Use
  Company Number: CA-NEBO-PC006738

PATIENT
  Age: 54 Year
  Sex: Male

DRUGS (1)
  1. MONOFERRIC [Suspect]
     Active Substance: FERRIC DERISOMALTOSE
     Indication: PRODUCT USED FOR UNKNOWN INDICATION
     Route: 042

REACTIONS (8)
  - Chills [Unknown]
  - Somnolence [Unknown]
  - Confusional state [Unknown]
  - Speech disorder [Unknown]
  - Blood pressure decreased [Unknown]
  - Altered state of consciousness [Unknown]
  - Nausea [Unknown]
  - Vomiting [Unknown]
